FAERS Safety Report 21158908 (Version 1)
Quarter: 2022Q3

REPORT INFORMATION
  Report Type: Spontaneous
  Country: ZW (occurrence: ZW)
  Receive Date: 20220802
  Receipt Date: 20220802
  Transmission Date: 20221026
  Serious: Yes (Other)
  Sender: FDA-Public Use
  Company Number: ZW-HETERO-HET2022ZW01767

PATIENT
  Sex: Female

DRUGS (4)
  1. LAMIVUDINE\TENOFOVIR [Suspect]
     Active Substance: LAMIVUDINE\TENOFOVIR
     Indication: HIV infection
     Dosage: UNK
     Route: 065
     Dates: start: 20220307
  2. TIVICAY [Suspect]
     Active Substance: DOLUTEGRAVIR SODIUM
     Indication: HIV infection
     Dosage: UNK
     Route: 065
     Dates: start: 20210526
  3. DARUNAVIR [Suspect]
     Active Substance: DARUNAVIR
     Indication: HIV infection
     Dosage: UNK
     Route: 048
     Dates: start: 20210526, end: 20220307
  4. RITONAVIR [Suspect]
     Active Substance: RITONAVIR
     Indication: HIV infection
     Dosage: UNK
     Route: 065
     Dates: start: 20210526, end: 20220307

REACTIONS (2)
  - Abortion spontaneous [Unknown]
  - Maternal exposure during pregnancy [Unknown]
